FAERS Safety Report 25347846 (Version 1)
Quarter: 2025Q2

REPORT INFORMATION
  Report Type: Spontaneous
  Country: US (occurrence: US)
  Receive Date: 20250522
  Receipt Date: 20250522
  Transmission Date: 20250717
  Serious: No
  Sender: LEO PHARM
  Company Number: US-LEO Pharma-379957

PATIENT
  Age: 16 Year
  Sex: Female

DRUGS (1)
  1. ADBRY [Suspect]
     Active Substance: TRALOKINUMAB-LDRM
     Indication: Dermatitis atopic
     Dosage: 150 MG
     Route: 058

REACTIONS (1)
  - Drug intolerance [Unknown]
